FAERS Safety Report 4337592-7 (Version None)
Quarter: 2004Q2

REPORT INFORMATION
  Report Type: 
  Country: None (occurrence: None)
  Receive Date: 20040413
  Receipt Date: 20030701
  Transmission Date: 20050107
  Serious: No
  Sender: FDA-Public Use
  Company Number: US-GLAXOSMITHKLINE-A0415605A

PATIENT
  Age: 25 Year
  Sex: Male

DRUGS (2)
  1. DEXEDRINE [Suspect]
     Dosage: 10MG THREE TIMES PER DAY
     Route: 048
  2. ADDERALL 10 [Concomitant]

REACTIONS (2)
  - ANXIETY [None]
  - TREMOR [None]
